FAERS Safety Report 10072331 (Version 1)
Quarter: 2014Q2

REPORT INFORMATION
  Report Type: Spontaneous
  Country: US (occurrence: None)
  Receive Date: 20140410
  Receipt Date: 20140410
  Transmission Date: 20141212
  Serious: Yes (Other)
  Sender: FDA-Public Use
  Company Number: None

PATIENT
  Age: 52 Year
  Sex: Male
  Weight: 102 kg

DRUGS (10)
  1. DOCETAXEL [Suspect]
     Indication: PROSTATE CANCER METASTATIC
     Dosage: 165MG ( 75MG/M2) IV OVER 60 MIN
     Route: 042
     Dates: start: 20140305
  2. CABOZANTINIB [Concomitant]
  3. PREDNISONE [Concomitant]
  4. ONDANSETRON [Concomitant]
  5. OXYCODONE [Concomitant]
  6. ZOLPIDEM [Concomitant]
  7. CALCIUM + VIT D [Concomitant]
  8. DOCUSATE/SENNA [Concomitant]
  9. UREA 20% CREAM [Concomitant]
  10. LEVOTHYROXINE [Concomitant]

REACTIONS (5)
  - Dyspnoea [None]
  - Chest discomfort [None]
  - Flushing [None]
  - Hypertension [None]
  - Respiratory rate increased [None]
